FAERS Safety Report 16069378 (Version 1)
Quarter: 2019Q1

REPORT INFORMATION
  Report Type: Report from Study
  Country: None (occurrence: US)
  Receive Date: 20190313
  Receipt Date: 20190313
  Transmission Date: 20190418
  Serious: Yes (Other)
  Sender: FDA-Public Use
  Company Number: US-ABBVIE-19K-163-2697552-00

PATIENT
  Age: 45 Year
  Sex: Female

DRUGS (1)
  1. HUMIRA [Suspect]
     Active Substance: ADALIMUMAB
     Indication: PSORIATIC ARTHROPATHY
     Route: 058

REACTIONS (7)
  - Toxicity to various agents [Unknown]
  - Psoriasis [Unknown]
  - Uterine cancer [Unknown]
  - LE cells [Unknown]
  - Neck mass [Unknown]
  - Kidney fibrosis [Unknown]
  - Proteinuria [Unknown]

NARRATIVE: CASE EVENT DATE: 2018
